FAERS Safety Report 18277961 (Version 4)
Quarter: 2020Q4

REPORT INFORMATION
  Report Type: Report from Study
  Country: CO (occurrence: CO)
  Receive Date: 20200917
  Receipt Date: 20201020
  Transmission Date: 20210113
  Serious: Yes (Hospitalization, Other)
  Sender: FDA-Public Use
  Company Number: CO-AMGEN-COLSL2020104522

PATIENT
  Age: 49 Year
  Sex: Female

DRUGS (4)
  1. VECTIBIX [Suspect]
     Active Substance: PANITUMUMAB
     Dosage: 340 MILLIGRAM, Q2WK
     Route: 042
     Dates: start: 20200817
  2. VECTIBIX [Suspect]
     Active Substance: PANITUMUMAB
     Indication: COLORECTAL CANCER METASTATIC
     Dosage: 340 MILLIGRAM, Q2WK
     Route: 042
     Dates: start: 20200331
  3. VECTIBIX [Suspect]
     Active Substance: PANITUMUMAB
     Dosage: 340 MILLIGRAM, Q2WK
     Route: 042
     Dates: start: 20201012
  4. NATURAL TEARS [Concomitant]
     Active Substance: POLYVINYL ALCOHOL\POVIDONE
     Dosage: 1 BOTTLE ( 1 DROP EVERY 12 HOURS IN EACH EYE)
     Dates: start: 202006

REACTIONS (7)
  - Rash pruritic [Not Recovered/Not Resolved]
  - Ear haemorrhage [Recovered/Resolved]
  - Skin haemorrhage [Not Recovered/Not Resolved]
  - Burning sensation [Not Recovered/Not Resolved]
  - Dermatitis [Not Recovered/Not Resolved]
  - Pain of skin [Not Recovered/Not Resolved]
  - Ear infection [Not Recovered/Not Resolved]

NARRATIVE: CASE EVENT DATE: 20200611
